FAERS Safety Report 9311939 (Version 1)
Quarter: 2012Q4

REPORT INFORMATION
  Report Type: Spontaneous
  Country: US (occurrence: None)
  Receive Date: 20121226
  Receipt Date: 20121226
  Transmission Date: 20130627
  Serious: Yes (Death, Other)
  Sender: FDA-Public Use
  Company Number: ADR-2012-02064

PATIENT
  Age: 26 Year
  Sex: Male

DRUGS (2)
  1. BACLOFEN [Suspect]
     Indication: HEAD INJURY
  2. BACLOFEN [Suspect]
     Indication: BRAIN INJURY

REACTIONS (2)
  - Myocardial infarction [None]
  - Malaise [None]
